FAERS Safety Report 4707004-X (Version None)
Quarter: 2005Q3

REPORT INFORMATION
  Report Type: 
  Country: None (occurrence: None)
  Receive Date: 20050705
  Receipt Date: 20050705
  Transmission Date: 20060218
  Serious: Yes (Life-Threatening)
  Sender: FDA-Public Use
  Company Number: None

PATIENT
  Age: 63 Year
  Sex: Female
  Weight: 55.611 kg

DRUGS (8)
  1. IMATINIB MESYLATE 100 MG TABLETS-NOVARTIS [Suspect]
     Indication: GLIOBLASTOMA MULTIFORME
     Dosage: 400 MG, PO QD
     Route: 048
     Dates: start: 20050606, end: 20050623
  2. HYDROXYUREA 500 MG CAPSULES [Suspect]
     Indication: GLIOBLASTOMA MULTIFORME
     Dosage: 500 MG, BID
     Dates: start: 20050606, end: 20050623
  3. RAD001 [Suspect]
     Indication: GLIOBLASTOMA MULTIFORME
     Dosage: 2.5 MG QD
     Dates: start: 20050606, end: 20050623
  4. ACTONEL [Concomitant]
  5. DIOVAN [Concomitant]
  6. NORVASC [Concomitant]
  7. HYDROXYCHLOROQUINE SULFATE [Concomitant]
  8. LEVOXYL [Concomitant]

REACTIONS (3)
  - ANAEMIA [None]
  - DRUG TOXICITY [None]
  - THROMBOCYTOPENIA [None]
